FAERS Safety Report 7135084-3 (Version None)
Quarter: 2010Q4

REPORT INFORMATION
  Report Type: 
  Country: None (occurrence: None)
  Receive Date: 20101203
  Receipt Date: 20101118
  Transmission Date: 20110411
  Serious: Yes (Death)
  Sender: FDA-Public Use
  Company Number: DK-ELI_LILLY_AND_COMPANY-DK201007006904

PATIENT
  Sex: Male
  Weight: 67 kg

DRUGS (4)
  1. ZYPREXA [Suspect]
     Indication: SCHIZOPHRENIA
     Dosage: 20 MG, DAILY (1/D)
     Route: 048
     Dates: start: 20060615
  2. ABILIFY [Concomitant]
     Indication: SCHIZOPHRENIA
     Dosage: 15 MG, 2/D
     Route: 048
     Dates: start: 20091104
  3. REMERON [Concomitant]
     Indication: DEPRESSION
     Dosage: 30 MG, DAILY (1/D)
     Route: 048
     Dates: start: 20091104
  4. ARINTAPIN [Concomitant]
     Indication: DEPRESSION

REACTIONS (2)
  - DRUG TOXICITY [None]
  - EOSINOPHILIC MYOCARDITIS [None]
